FAERS Safety Report 14413363 (Version 1)
Quarter: 2018Q1

REPORT INFORMATION
  Report Type: Spontaneous
  Country: SE (occurrence: SE)
  Receive Date: 20180119
  Receipt Date: 20180119
  Transmission Date: 20180509
  Serious: Yes (Other)
  Sender: FDA-Public Use
  Company Number: SE-TEVA-2018-SE-846183

PATIENT
  Age: 33 Year
  Sex: Female

DRUGS (1)
  1. LITHIUM. [Suspect]
     Active Substance: LITHIUM
     Route: 065

REACTIONS (3)
  - Tremor [Unknown]
  - Derealisation [Unknown]
  - Diarrhoea [Unknown]
